FAERS Safety Report 9737141 (Version 2)
Quarter: 2023Q2

REPORT INFORMATION
  Report Type: Other
  Country: GB (occurrence: None)
  Receive Date: 20131206
  Receipt Date: 20230505
  Transmission Date: 20230722
  Serious: Yes (Hospitalization)
  Sender: FDA-Public Use
  Company Number: GB-ROCHE-1312492

PATIENT
  Sex: Male

DRUGS (5)
  1. SOMATROPIN [Suspect]
     Active Substance: SOMATROPIN
     Indication: Growth hormone deficiency
     Route: 065
  2. PREDNISOLONE [Concomitant]
     Active Substance: PREDNISOLONE
     Dosage: FOR 4 WEEKS FOLLOWED BY A DOSE OF 40 MG/M2 FOR A SUBSEQUENT 4 WEEKS
  3. ENALAPRIL [Concomitant]
     Active Substance: ENALAPRIL
  4. LOSARTAN [Concomitant]
     Active Substance: LOSARTAN
  5. TACROLIMUS [Concomitant]
     Active Substance: TACROLIMUS
     Dosage: FOR A MONTH

REACTIONS (1)
  - Budd-Chiari syndrome [Unknown]
